FAERS Safety Report 7527396-6 (Version None)
Quarter: 2011Q2

REPORT INFORMATION
  Report Type: 
  Country: None (occurrence: None)
  Receive Date: 20110607
  Receipt Date: 20110525
  Transmission Date: 20111010
  Serious: Yes (Other)
  Sender: FDA-Public Use
  Company Number: DE-JNJFOC-20110600639

PATIENT
  Sex: Female
  Weight: 94 kg

DRUGS (1)
  1. TAPENTADOL [Suspect]
     Indication: NEURALGIA
     Dosage: 1/DAY
     Route: 048
     Dates: start: 20110429, end: 20110501

REACTIONS (5)
  - LISTLESS [None]
  - SUICIDAL IDEATION [None]
  - DEPRESSION [None]
  - DIARRHOEA [None]
  - NAUSEA [None]
